FAERS Safety Report 4954305-6 (Version None)
Quarter: 2006Q1

REPORT INFORMATION
  Report Type: 
  Country: None (occurrence: None)
  Receive Date: 20060327
  Receipt Date: 20060316
  Transmission Date: 20060701
  Serious: Yes (Hospitalization)
  Sender: FDA-Public Use
  Company Number: US-MERCK-0603USA03011

PATIENT
  Age: 56 Year
  Sex: Female
  Weight: 93 kg

DRUGS (9)
  1. VIOXX [Suspect]
     Indication: SHOULDER PAIN
     Route: 048
     Dates: start: 20010601, end: 20010917
  2. VIOXX [Suspect]
     Route: 048
     Dates: start: 20020203, end: 20020303
  3. VIOXX [Suspect]
     Route: 048
     Dates: start: 20040802, end: 20040823
  4. VIOXX [Suspect]
     Indication: BACK PAIN
     Route: 048
     Dates: start: 20010601, end: 20010917
  5. VIOXX [Suspect]
     Route: 048
     Dates: start: 20020203, end: 20020303
  6. VIOXX [Suspect]
     Route: 048
     Dates: start: 20040802, end: 20040823
  7. LASIX [Concomitant]
     Route: 048
  8. ZITHROMAX [Concomitant]
     Route: 065
  9. ALTACE [Concomitant]
     Route: 048

REACTIONS (9)
  - ACUTE MYOCARDIAL INFARCTION [None]
  - CARDIAC ANEURYSM [None]
  - CARDIAC FAILURE [None]
  - CORONARY ARTERY DISEASE [None]
  - HYPERTENSION [None]
  - ISCHAEMIC CARDIOMYOPATHY [None]
  - LIMB INJURY [None]
  - PERICARDITIS [None]
  - PLEURAL EFFUSION [None]
